FAERS Safety Report 8246791-3 (Version None)
Quarter: 2012Q1

REPORT INFORMATION
  Report Type: 
  Country: None (occurrence: None)
  Receive Date: 20120330
  Receipt Date: 20120321
  Transmission Date: 20120608
  Serious: Yes (Other)
  Sender: FDA-Public Use
  Company Number: US-PFIZER INC-2012039606

PATIENT
  Sex: Female
  Weight: 46.712 kg

DRUGS (8)
  1. TRAZODONE [Concomitant]
     Dosage: UNK
  2. LEVOTHYROXINE [Concomitant]
     Indication: HYPOTHYROIDISM
     Dosage: UNK
  3. EFFEXOR XR [Suspect]
     Indication: DEPRESSION
     Dosage: 300 MG, 1X/DAY
     Route: 048
     Dates: end: 20090101
  4. PRISTIQ [Suspect]
     Indication: ANXIETY
     Dosage: 100 MG, 1X/DAY
     Route: 048
  5. KLONOPIN [Concomitant]
     Dosage: UNK, AS NEEDED
  6. EFFEXOR [Suspect]
     Dosage: UNK
  7. EFFEXOR XR [Suspect]
     Indication: ANXIETY
  8. PRISTIQ [Suspect]
     Indication: DEPRESSION
     Dosage: 50 MG, 1X/DAY
     Route: 048
     Dates: start: 20090401

REACTIONS (7)
  - IRRITABILITY [None]
  - BLOOD CREATININE INCREASED [None]
  - EMOTIONAL DISORDER [None]
  - URINARY HESITATION [None]
  - RENAL IMPAIRMENT [None]
  - OSTEOPOROSIS [None]
  - DEPRESSION [None]
